FAERS Safety Report 10584872 (Version 1)
Quarter: 2014Q4

REPORT INFORMATION
  Report Type: Spontaneous
  Country: US (occurrence: None)
  Receive Date: 20141113
  Receipt Date: 20141113
  Transmission Date: 20150529
  Serious: Yes (Hospitalization)
  Sender: FDA-Public Use
  Company Number: None

PATIENT
  Age: 54 Year
  Sex: Male
  Weight: 82.7 kg

DRUGS (2)
  1. TAXOTERE [Suspect]
     Active Substance: DOCETAXEL
  2. ERBITUX [Suspect]
     Active Substance: CETUXIMAB

REACTIONS (3)
  - Weight decreased [None]
  - Radiation skin injury [None]
  - Catheter site infection [None]

NARRATIVE: CASE EVENT DATE: 20141007
